FAERS Safety Report 23202682 (Version 1)
Quarter: 2023Q4

REPORT INFORMATION
  Report Type: Report from Study
  Country: CN (occurrence: CN)
  Receive Date: 20231120
  Receipt Date: 20231120
  Transmission Date: 20240110
  Serious: Yes (Life-Threatening, Hospitalization)
  Sender: FDA-Public Use
  Company Number: CN-EUCURE (BEIJING) BIOPHARMA CO., LTD-2023CN00009

PATIENT

DRUGS (38)
  1. TORIPALIMAB [Suspect]
     Active Substance: TORIPALIMAB
     Indication: Ductal adenocarcinoma of pancreas
     Dosage: 240 MG, Q3W, C1D1
     Route: 042
     Dates: start: 20221025, end: 20231025
  2. TORIPALIMAB [Suspect]
     Active Substance: TORIPALIMAB
     Indication: Ductal adenocarcinoma of pancreas
     Dosage: 240 MG, Q3W, C2D1
     Route: 042
     Dates: start: 20221104, end: 20231104
  3. TORIPALIMAB [Suspect]
     Active Substance: TORIPALIMAB
     Dosage: 240 MG, Q3W, C3D1
     Route: 042
     Dates: start: 20221206, end: 20221206
  4. TORIPALIMAB [Suspect]
     Active Substance: TORIPALIMAB
     Dosage: 240 MG, Q3W, C4D1
     Route: 042
     Dates: start: 20230103, end: 20230103
  5. TORIPALIMAB [Suspect]
     Active Substance: TORIPALIMAB
     Dosage: 240 MG, Q3W, C5D1
     Route: 042
     Dates: start: 20230120, end: 20230120
  6. TORIPALIMAB [Suspect]
     Active Substance: TORIPALIMAB
     Dosage: 240 MG, Q3W, C6D1
     Route: 042
     Dates: start: 20230212, end: 20230212
  7. INVESTIGATIONAL PRODUCT [Suspect]
     Active Substance: INVESTIGATIONAL PRODUCT
     Indication: Ductal adenocarcinoma of pancreas
     Dosage: 19.8 MG, Q3WEEKS, C1D1
     Route: 042
     Dates: start: 20221025, end: 20231025
  8. INVESTIGATIONAL PRODUCT [Suspect]
     Active Substance: INVESTIGATIONAL PRODUCT
     Dosage: 19.8 MG, Q3WEEKS, C2D1
     Route: 042
     Dates: start: 20221114, end: 20221114
  9. INVESTIGATIONAL PRODUCT [Suspect]
     Active Substance: INVESTIGATIONAL PRODUCT
     Dosage: 19.8 MG, Q3WEEKS, C3D1
     Route: 042
     Dates: start: 20221206, end: 20221206
  10. INVESTIGATIONAL PRODUCT [Suspect]
     Active Substance: INVESTIGATIONAL PRODUCT
     Dosage: 19.8 MG, Q3WEEKS, C4D1
     Route: 042
     Dates: start: 20230103, end: 20230103
  11. INVESTIGATIONAL PRODUCT [Suspect]
     Active Substance: INVESTIGATIONAL PRODUCT
     Dosage: 19.8 MG, Q3WEEKS, C5D1
     Route: 042
     Dates: start: 20230120, end: 20230120
  12. INVESTIGATIONAL PRODUCT [Suspect]
     Active Substance: INVESTIGATIONAL PRODUCT
     Dosage: 19.8 MG, Q3WEEKS, C6D1
     Route: 042
     Dates: start: 20230212, end: 20230212
  13. PACLITAXEL [Suspect]
     Active Substance: PACLITAXEL
     Indication: Ductal adenocarcinoma of pancreas
     Dosage: 200 MG, DAY 1 AND DAY 8 OF EACH 21 DAYS, C1D1
     Route: 042
     Dates: start: 20221025, end: 20221025
  14. PACLITAXEL [Suspect]
     Active Substance: PACLITAXEL
     Dosage: 200 MG, C1D8, DAY 1 AND DAY 8 OF EACH 21 DAYS
     Dates: start: 20221102, end: 20221102
  15. PACLITAXEL [Suspect]
     Active Substance: PACLITAXEL
     Dosage: 200 MG, DAY 1 AND DAY 8 OF EACH 21 DAYS, C2D1
     Route: 042
     Dates: start: 20221114, end: 20221114
  16. PACLITAXEL [Suspect]
     Active Substance: PACLITAXEL
     Dosage: 200 MG, DAY 1 AND DAY 8 OF EACH 21 DAYS, C2D8
     Route: 042
     Dates: start: 20221122, end: 20221122
  17. PACLITAXEL [Suspect]
     Active Substance: PACLITAXEL
     Dosage: 200 MG, DAY 1 AND DAY 8 OF EACH 21 DAYS, C3D1
     Route: 042
     Dates: start: 20221206, end: 20221206
  18. PACLITAXEL [Suspect]
     Active Substance: PACLITAXEL
     Dosage: 200 MG, DAY 1 AND DAY 8 OF EACH 21 DAYS, C4D1
     Route: 042
     Dates: start: 20230103, end: 20230103
  19. PACLITAXEL [Suspect]
     Active Substance: PACLITAXEL
     Dosage: 200 MG, DAY 1 AND DAY 8 OF EACH 21 DAYS, C5D1
     Route: 042
     Dates: start: 20230120, end: 20230120
  20. PACLITAXEL [Suspect]
     Active Substance: PACLITAXEL
     Dosage: 200 MG, DAY 1 AND DAY 8 OF EACH 21 DAYS, C5D8
     Route: 042
     Dates: start: 20230129, end: 20230129
  21. PACLITAXEL [Suspect]
     Active Substance: PACLITAXEL
     Dosage: 200 MG, DAY 1 AND DAY 8 OF EACH 21 DAYS, C5D8
     Route: 042
     Dates: start: 20230221, end: 20230221
  22. GEMCITABINE [Suspect]
     Active Substance: GEMCITABINE
     Indication: Ductal adenocarcinoma of pancreas
     Dosage: 1500 MG, DAY 1 AND DAY 8 OF EACH 21 DAYS, C1D1
     Route: 042
     Dates: start: 20221025, end: 20221025
  23. GEMCITABINE [Suspect]
     Active Substance: GEMCITABINE
     Dosage: 1500 MG, C1D8, DAY 1 AND DAY 8 OF EACH 21 DAYS
     Route: 042
     Dates: start: 20221102, end: 20221102
  24. GEMCITABINE [Suspect]
     Active Substance: GEMCITABINE
     Dosage: 1500 MG, DAY 1 AND DAY 8 OF EACH 21 DAYS, C2D1
     Route: 042
     Dates: start: 20221114, end: 20221114
  25. GEMCITABINE [Suspect]
     Active Substance: GEMCITABINE
     Dosage: 1500 MG, DAY 1 AND DAY 8 OF EACH 21 DAYS, C2D8
     Route: 042
     Dates: start: 20221122, end: 20221122
  26. GEMCITABINE [Suspect]
     Active Substance: GEMCITABINE
     Dosage: 1500 MG, V, C3D1
     Route: 042
     Dates: start: 20221206, end: 20221206
  27. GEMCITABINE [Suspect]
     Active Substance: GEMCITABINE
     Dosage: 1500 MG, DAY 1 AND DAY 8 OF EACH 21 DAYS, C4D1
     Route: 042
     Dates: start: 20230103, end: 20230103
  28. GEMCITABINE [Suspect]
     Active Substance: GEMCITABINE
     Dosage: 1500 MG, DAY 1 AND DAY 8 OF EACH 21 DAYS,, C5D1
     Route: 042
     Dates: start: 20230120, end: 20230120
  29. GEMCITABINE [Suspect]
     Active Substance: GEMCITABINE
     Dosage: 1500 MG, DAY 1 AND DAY 8 OF EACH 21 DAYS, C5D8
     Route: 042
     Dates: start: 20230129, end: 20230129
  30. GEMCITABINE [Suspect]
     Active Substance: GEMCITABINE
     Dosage: 1500 MG, DAY 1 AND DAY 8 OF EACH 21 DAYS, C5D8
     Route: 042
     Dates: start: 20230221, end: 20230221
  31. HYDROCHLOROTHIAZIDE\LOSARTAN POTASSIUM [Concomitant]
     Active Substance: HYDROCHLOROTHIAZIDE\LOSARTAN POTASSIUM
     Indication: Hypertension
     Dosage: 50 MG, QD
     Route: 048
     Dates: start: 2014
  32. BISOPROLOL FUMARATE [Concomitant]
     Active Substance: BISOPROLOL FUMARATE
     Indication: Hypertension
     Dosage: 5 MG, QD
     Route: 048
  33. ASPIRIN [Concomitant]
     Active Substance: ASPIRIN
     Indication: Hyperlipidaemia
     Dosage: 100 MG, QD
     Route: 048
  34. ASPIRIN [Concomitant]
     Active Substance: ASPIRIN
     Indication: Cerebral infarction
  35. ROSUVASTATIN [Concomitant]
     Active Substance: ROSUVASTATIN
     Indication: Hyperlipidaemia
     Dosage: 5 MG, QD
     Route: 048
  36. ROSUVASTATIN [Concomitant]
     Active Substance: ROSUVASTATIN
     Indication: Cerebral infarction
  37. INSULIN ASPART [Concomitant]
     Active Substance: INSULIN ASPART
     Indication: Diabetes mellitus
     Dosage: 6 U, TID
     Route: 058
  38. INSULIN GLARGINE [Concomitant]
     Active Substance: INSULIN GLARGINE
     Indication: Diabetes mellitus
     Dosage: 12 U, QN
     Route: 058

REACTIONS (1)
  - Infusion related reaction [Recovered/Resolved]

NARRATIVE: CASE EVENT DATE: 20230212
